FAERS Safety Report 7946286-8 (Version None)
Quarter: 2011Q4

REPORT INFORMATION
  Report Type: 
  Country: None (occurrence: None)
  Receive Date: 20111129
  Receipt Date: 20111116
  Transmission Date: 20120403
  Serious: Yes (Hospitalization, Other)
  Sender: FDA-Public Use
  Company Number: BR-ROCHE-792968

PATIENT
  Sex: Male
  Weight: 78 kg

DRUGS (6)
  1. CAPTOPRIL [Concomitant]
  2. SIMVASTATIN [Concomitant]
  3. FOLIC ACID [Concomitant]
  4. OMEPRAZOLE [Concomitant]
  5. ACTEMRA [Suspect]
     Indication: RHEUMATOID ARTHRITIS
     Route: 065
  6. LEVOID [Concomitant]

REACTIONS (7)
  - PROSTATE CANCER [None]
  - HYPERTENSION [None]
  - FATIGUE [None]
  - MALAISE [None]
  - HEADACHE [None]
  - PROSTATIC SPECIFIC ANTIGEN ABNORMAL [None]
  - DECREASED APPETITE [None]
